FAERS Safety Report 10237846 (Version 1)
Quarter: 2014Q2

REPORT INFORMATION
  Report Type: Spontaneous
  Country: US (occurrence: US)
  Receive Date: 20140616
  Receipt Date: 20140616
  Transmission Date: 20141212
  Serious: Yes (Hospitalization)
  Sender: FDA-Public Use
  Company Number: US-BIOGENIDEC-2014BI055660

PATIENT
  Age: 59 Year
  Sex: Male

DRUGS (2)
  1. AVONEX [Suspect]
     Indication: MULTIPLE SCLEROSIS
     Route: 030
     Dates: start: 20080601
  2. METHODONE [Concomitant]
     Indication: PAIN
     Route: 048

REACTIONS (18)
  - Trigeminal neuralgia [Not Recovered/Not Resolved]
  - Diplopia [Not Recovered/Not Resolved]
  - Visual impairment [Not Recovered/Not Resolved]
  - Memory impairment [Not Recovered/Not Resolved]
  - Fall [Recovered/Resolved]
  - Hearing impaired [Not Recovered/Not Resolved]
  - Concussion [Unknown]
  - Wrist fracture [Unknown]
  - Foot fracture [Recovered/Resolved]
  - Foot deformity [Recovered/Resolved]
  - Multiple sclerosis [Not Recovered/Not Resolved]
  - Sensitivity to weather change [Unknown]
  - Limb injury [Recovered/Resolved]
  - General symptom [Unknown]
  - Affect lability [Not Recovered/Not Resolved]
  - Multiple sclerosis relapse [Unknown]
  - Insomnia [Not Recovered/Not Resolved]
  - Fatigue [Unknown]
